FAERS Safety Report 18182926 (Version 1)
Quarter: 2020Q3

REPORT INFORMATION
  Report Type: Spontaneous
  Country: KR (occurrence: KR)
  Receive Date: 20200821
  Receipt Date: 20200821
  Transmission Date: 20201103
  Serious: Yes (Death, Hospitalization, Other)
  Sender: FDA-Public Use
  Company Number: KR-JAZZ-2020-KR-010726

PATIENT
  Age: 56 Year
  Sex: Female

DRUGS (1)
  1. DEFITELIO [Suspect]
     Active Substance: DEFIBROTIDE SODIUM
     Indication: VENOOCCLUSIVE DISEASE
     Dosage: UNKNOWN DOSE AND DURATION
     Route: 042
     Dates: start: 20200803, end: 20200805

REACTIONS (2)
  - Cardiac failure [Fatal]
  - Off label use [Unknown]

NARRATIVE: CASE EVENT DATE: 202008
